FAERS Safety Report 26037377 (Version 1)
Quarter: 2025Q4

REPORT INFORMATION
  Report Type: Spontaneous
  Country: US (occurrence: US)
  Receive Date: 20251112
  Receipt Date: 20251112
  Transmission Date: 20260117
  Serious: Yes (Death)
  Sender: AMGEN
  Company Number: US-AMGEN-USASP2025220225

PATIENT
  Age: 74 Year
  Sex: Female

DRUGS (6)
  1. PREDNISONE [Suspect]
     Active Substance: PREDNISONE
     Indication: Rheumatoid arthritis
     Dosage: UNK
     Route: 048
  2. PREDNISONE [Suspect]
     Active Substance: PREDNISONE
     Indication: Haemophagocytic lymphohistiocytosis
     Dosage: 20 MILLIGRAM, QD (FOR 4 DAYS)
     Route: 048
  3. ABATACEPT [Concomitant]
     Active Substance: ABATACEPT
     Indication: Rheumatoid arthritis
  4. DEXAMETHASONE [Concomitant]
     Active Substance: DEXAMETHASONE
     Indication: Haemophagocytic lymphohistiocytosis
     Dosage: 20 MILLIGRAM, QD (FOR 5 DAYS)
     Route: 040
  5. ETOPOSIDE [Concomitant]
     Active Substance: ETOPOSIDE
     Indication: Haemophagocytic lymphohistiocytosis
     Dosage: 150 MILLIGRAM/SQ. METER (FOR 2 DOSES)
  6. AMPHOTERICIN B [Concomitant]
     Active Substance: AMPHOTERICIN B
     Indication: Histoplasmosis disseminated

REACTIONS (1)
  - Death [Fatal]
